FAERS Safety Report 8565404 (Version 2)
Quarter: 2013Q1

REPORT INFORMATION
  Report Type: Spontaneous
  Country: US (occurrence: US)
  Receive Date: 20120516
  Receipt Date: 20130225
  Transmission Date: 20140127
  Serious: Yes (Death, Hospitalization, Other)
  Sender: FDA-Public Use
  Company Number: US-AMGEN-USASP2012029230

PATIENT
  Age: 61 Year
  Sex: Female
  Weight: 58.96 kg

DRUGS (8)
  1. ENBREL [Suspect]
     Indication: RHEUMATOID ARTHRITIS
     Dosage: UNK
     Dates: start: 2002, end: 2011
  2. HUMIRA [Suspect]
     Indication: RHEUMATOID ARTHRITIS
     Dosage: 40 MG, 1 IN 2 WEEKS
     Route: 058
     Dates: start: 201112, end: 20120402
  3. LEVOTHYROXINE [Suspect]
     Indication: HYPOTHYROIDISM
     Dosage: DAILY FOR YEARS
  4. METHOTREXATE [Suspect]
     Indication: RHEUMATOID ARTHRITIS
     Dosage: 7.5 MG, WEEKLY
     Route: 048
     Dates: end: 20120403
  5. RITUXIMAB [Suspect]
     Indication: RHEUMATOID ARTHRITIS
     Dosage: 1000 MG, UNK
     Route: 042
     Dates: end: 201109
  6. MEFENAMIC ACID [Suspect]
     Indication: RHEUMATOID ARTHRITIS
     Dosage: DAILY FOR YEARS 200 MG AS REQUIRED
  7. ALENDRONATE SODIUM [Suspect]
     Indication: OSTEOPOROSIS
     Dosage: WEEKLY FOR YEARS
  8. FOLIC ACID [Suspect]
     Indication: RHEUMATOID ARTHRITIS
     Dosage: DAILY FOR YEARS

REACTIONS (5)
  - Hepatic failure [Fatal]
  - Hepatic enzyme increased [Not Recovered/Not Resolved]
  - Influenza like illness [Unknown]
  - Acute hepatitis B [Fatal]
  - Drug ineffective [Recovered/Resolved]
